FAERS Safety Report 22044566 (Version 1)
Quarter: 2023Q1

REPORT INFORMATION
  Report Type: Spontaneous
  Country: US (occurrence: None)
  Receive Date: 20230227
  Receipt Date: 20230227
  Transmission Date: 20230417
  Serious: Yes (unspecified)
  Sender: FDA-Public Use
  Company Number: None

PATIENT
  Age: 20 Year
  Sex: Female
  Weight: 56.25 kg

DRUGS (1)
  1. ARIPIPRAZOLE [Suspect]
     Active Substance: ARIPIPRAZOLE
     Indication: Depression
     Dosage: OTHER QUANTITY : 1 TABLET(S);?FREQUENCY : DAILY;?
     Route: 048

REACTIONS (10)
  - Therapy change [None]
  - Oculogyric crisis [None]
  - Impulse-control disorder [None]
  - Eye movement disorder [None]
  - Eye pain [None]
  - Speech disorder [None]
  - Mental impairment [None]
  - Drug use disorder [None]
  - Alcohol use [None]
  - Sexually inappropriate behaviour [None]

NARRATIVE: CASE EVENT DATE: 20190119
